FAERS Safety Report 5895681-X (Version None)
Quarter: 2008Q3

REPORT INFORMATION
  Report Type: 
  Country: None (occurrence: None)
  Receive Date: 20080924
  Receipt Date: 20070904
  Transmission Date: 20090109
  Serious: No
  Sender: FDA-Public Use
  Company Number: US-BAYER-200713011BWH

PATIENT
  Sex: Male

DRUGS (2)
  1. CIPRO [Suspect]
     Indication: DIVERTICULITIS
  2. FLAGYL [Concomitant]

REACTIONS (1)
  - MALAISE [None]
